FAERS Safety Report 18624307 (Version 7)
Quarter: 2021Q4

REPORT INFORMATION
  Report Type: Report from Study
  Country: CO (occurrence: CO)
  Receive Date: 20201216
  Receipt Date: 20211223
  Transmission Date: 20220303
  Serious: Yes (Other)
  Sender: FDA-Public Use
  Company Number: CO-TAKEDA-CO201932652

PATIENT
  Age: 25 Year
  Sex: Female
  Weight: 50 kg

DRUGS (12)
  1. ICATIBANT [Suspect]
     Active Substance: ICATIBANT ACETATE
     Indication: Hereditary angioedema
     Dosage: UNKNOWN EVERY 6 HOURS FOR EPISODES
     Route: 058
     Dates: start: 20160620
  2. ICATIBANT [Suspect]
     Active Substance: ICATIBANT ACETATE
     Indication: Hereditary angioedema
     Dosage: UNKNOWN EVERY 6 HOURS FOR EPISODES
     Route: 058
     Dates: start: 20160620
  3. ICATIBANT [Suspect]
     Active Substance: ICATIBANT ACETATE
     Dosage: 30 MILLIGRAM/3ML, EVERY 6 HOURS FOR EPISODES
     Route: 058
     Dates: start: 20200120
  4. ICATIBANT [Suspect]
     Active Substance: ICATIBANT ACETATE
     Dosage: 30 MILLIGRAM/3ML, EVERY 6 HOURS FOR EPISODES
     Route: 058
     Dates: start: 20200120
  5. ICATIBANT [Suspect]
     Active Substance: ICATIBANT ACETATE
     Dosage: 30 MILLIGRAM/3ML, EVERY 6 HOURS FOR EPISODES
     Route: 058
     Dates: start: 20200208
  6. ICATIBANT [Suspect]
     Active Substance: ICATIBANT ACETATE
     Dosage: 30 MILLIGRAM/3ML, EVERY 6 HOURS FOR EPISODES
     Route: 058
     Dates: start: 20200208
  7. ICATIBANT [Suspect]
     Active Substance: ICATIBANT ACETATE
     Dosage: 30 MILLIGRAM/3ML
     Route: 058
     Dates: start: 20200604
  8. ICATIBANT [Suspect]
     Active Substance: ICATIBANT ACETATE
     Dosage: 30 MILLIGRAM/3ML
     Route: 058
     Dates: start: 20200604
  9. ICATIBANT [Suspect]
     Active Substance: ICATIBANT ACETATE
     Dosage: 30 MILLIGRAM/3ML, EVERY 6 HOURS FOR EPISODES
     Route: 058
     Dates: start: 20201009
  10. ICATIBANT [Suspect]
     Active Substance: ICATIBANT ACETATE
     Dosage: 30 MILLIGRAM/3ML, EVERY 6 HOURS FOR EPISODES
     Route: 058
     Dates: start: 20201009
  11. ICATIBANT [Suspect]
     Active Substance: ICATIBANT ACETATE
     Dosage: 30 MILLIGRAM/3ML, EVERY 6 HOURS FOR EPISODES
     Route: 058
     Dates: start: 20200120
  12. ICATIBANT [Suspect]
     Active Substance: ICATIBANT ACETATE
     Dosage: 30 MILLIGRAM/3ML, EVERY 6 HOURS FOR EPISODES
     Route: 058
     Dates: start: 20200120

REACTIONS (8)
  - Influenza [Recovering/Resolving]
  - Cystitis [Recovering/Resolving]
  - Exposure during pregnancy [Unknown]
  - Product availability issue [Unknown]
  - Vaginal haemorrhage [Recovered/Resolved]
  - Weight increased [Unknown]
  - Haematoma [Unknown]
  - Body height decreased [Unknown]

NARRATIVE: CASE EVENT DATE: 20191108
